FAERS Safety Report 23085080 (Version 1)
Quarter: 2023Q4

REPORT INFORMATION
  Report Type: Spontaneous
  Country: FR (occurrence: FR)
  Receive Date: 20231019
  Receipt Date: 20231019
  Transmission Date: 20240110
  Serious: Yes (Hospitalization)
  Sender: FDA-Public Use
  Company Number: None

PATIENT
  Age: 72 Year
  Sex: Female

DRUGS (3)
  1. GEMCITABINE HYDROCHLORIDE [Suspect]
     Active Substance: GEMCITABINE HYDROCHLORIDE
     Indication: Bile duct cancer
     Dosage: UNK UNK, UNKNOWN
     Route: 065
     Dates: start: 20230824
  2. IMFINZI [Suspect]
     Active Substance: DURVALUMAB
     Indication: Bile duct cancer
     Dosage: 50 MG/ML, UNKNOWN
     Route: 065
     Dates: start: 20230824
  3. CISPLATIN [Suspect]
     Active Substance: CISPLATIN
     Indication: Bile duct cancer
     Dosage: UNK UNK, UNKNOWN
     Route: 065
     Dates: start: 20230824

REACTIONS (1)
  - Postoperative wound complication [Recovering/Resolving]

NARRATIVE: CASE EVENT DATE: 20230831
